FAERS Safety Report 6416242-X (Version None)
Quarter: 2009Q4

REPORT INFORMATION
  Report Type: 
  Country: None (occurrence: None)
  Receive Date: 20091027
  Receipt Date: 20091020
  Transmission Date: 20100525
  Serious: No
  Sender: FDA-Public Use
  Company Number: US-B.I. PHARMACEUTICALS,INC./RIDGEFIELD-2009-BP-09954BP

PATIENT
  Sex: Female
  Weight: 47.17 kg

DRUGS (5)
  1. SPIRIVA [Suspect]
     Indication: EMPHYSEMA
     Dosage: 18 MCG
     Route: 055
     Dates: start: 20070101, end: 20090901
  2. SPIRIVA [Suspect]
     Indication: CHRONIC OBSTRUCTIVE PULMONARY DISEASE
  3. ADVAIR DISKUS 100/50 [Concomitant]
     Indication: EMPHYSEMA
     Route: 055
     Dates: start: 19990101
  4. M.V.I. [Concomitant]
  5. CALCIUM [Concomitant]

REACTIONS (2)
  - DIZZINESS POSTURAL [None]
  - VERTIGO [None]
